FAERS Safety Report 9391608 (Version 1)
Quarter: 2013Q3

REPORT INFORMATION
  Report Type: Spontaneous
  Country: US (occurrence: US)
  Receive Date: 20130709
  Receipt Date: 20130709
  Transmission Date: 20140515
  Serious: Yes (Hospitalization, Other)
  Sender: FDA-Public Use
  Company Number: US-ASTRAZENECA-2013SE50403

PATIENT
  Age: 88 Year
  Sex: Female

DRUGS (8)
  1. PRILOSEC OTC [Suspect]
     Route: 048
     Dates: start: 20130614
  2. SYNTHROID [Concomitant]
  3. KCLOR [Concomitant]
  4. METFORMIN [Concomitant]
  5. CARVEDILOL [Concomitant]
  6. NORVASC [Concomitant]
  7. METANX [Concomitant]
  8. ALPRAZOLAM [Concomitant]

REACTIONS (4)
  - Ventricular extrasystoles [Unknown]
  - Palpitations [Unknown]
  - Asthenia [Unknown]
  - Stress [Unknown]
